FAERS Safety Report 9041179 (Version 1)
Quarter: 2013Q1

REPORT INFORMATION
  Report Type: Spontaneous
  Country: US (occurrence: None)
  Receive Date: 20130114
  Receipt Date: 20130114
  Transmission Date: 20140127
  Serious: Yes (Hospitalization)
  Sender: FDA-Public Use
  Company Number: FK201300027

PATIENT
  Age: 58 Year
  Sex: Female

DRUGS (8)
  1. DOXORUBICIN [Suspect]
     Indication: BREAST CANCER
  2. DOCETAXEL [Suspect]
     Indication: BREAST CANCER
  3. PROCHLORPERAZINE (PROCHLORPERAZINE) [Concomitant]
  4. LORAZEPAM (LORAZEPAM) [Concomitant]
  5. PRAVASTATIN (PRAVASTATIN) [Concomitant]
  6. TRIAMTERENE AND HYDROCHLOROTHIAZID (DYAZIDE) [Concomitant]
  7. HYDROCODONE/ACETAMINOPHEN (REMEDEINE /01204101/) [Concomitant]
  8. TRASTUZUMAB (TRASTUZUMAB) [Concomitant]

REACTIONS (1)
  - Cutaneous lupus erythematosus [None]
